FAERS Safety Report 4433373-4 (Version None)
Quarter: 2004Q3

REPORT INFORMATION
  Report Type: 
  Country: None (occurrence: None)
  Receive Date: 20040820
  Receipt Date: 20040809
  Transmission Date: 20050211
  Serious: Yes (Other)
  Sender: FDA-Public Use
  Company Number: A0521394A

PATIENT
  Sex: Female

DRUGS (1)
  1. NICORETTE [Suspect]
     Indication: EX-SMOKER
     Dosage: 4 MG / SINGLE DOSE / TRANSDERMAL
     Route: 062
     Dates: start: 20040629, end: 20040629

REACTIONS (4)
  - DYSPNOEA [None]
  - NAUSEA [None]
  - THROAT TIGHTNESS [None]
  - VOMITING [None]
